FAERS Safety Report 25361239 (Version 2)
Quarter: 2025Q2

REPORT INFORMATION
  Report Type: Report from Study
  Country: BR (occurrence: BR)
  Receive Date: 20250527
  Receipt Date: 20250623
  Transmission Date: 20250717
  Serious: Yes (Other)
  Sender: TAKEDA
  Company Number: BR-TAKEDA-2025TUS048742

PATIENT
  Age: 47 Year
  Sex: Female

DRUGS (1)
  1. VEDOLIZUMAB [Suspect]
     Active Substance: VEDOLIZUMAB
     Indication: Colitis ulcerative

REACTIONS (6)
  - Ovarian neoplasm [Unknown]
  - Fluid retention [Unknown]
  - Inappropriate schedule of product administration [Unknown]
  - Fall [Unknown]
  - Limb injury [Unknown]
  - Wound infection [Unknown]

NARRATIVE: CASE EVENT DATE: 20250501
